FAERS Safety Report 5643472-7 (Version None)
Quarter: 2008Q1

REPORT INFORMATION
  Report Type: 
  Country: None (occurrence: None)
  Receive Date: 20080228
  Receipt Date: 20080225
  Transmission Date: 20080703
  Serious: Yes (Death, Hospitalization)
  Sender: FDA-Public Use
  Company Number: GBWYE733925MAY07

PATIENT
  Sex: Male

DRUGS (2)
  1. GEMTUZUMAB OZOGAMICIN [Suspect]
     Indication: CHEMOTHERAPY
     Dosage: 3 MG/M^2 EVERY 1 TOT
     Dates: start: 20070405, end: 20070415
  2. DAUNORUBICIN HCL [Suspect]
     Indication: CHEMOTHERAPY
     Dosage: 37.5 MG/M^2 EVERY 1 TOT
     Dates: start: 20070405, end: 20070415

REACTIONS (3)
  - FUNGAL INFECTION [None]
  - NEUTROPENIA [None]
  - PNEUMONIA [None]
